FAERS Safety Report 6978363-2 (Version None)
Quarter: 2010Q3

REPORT INFORMATION
  Report Type: 
  Country: None (occurrence: None)
  Receive Date: 20100913
  Receipt Date: 20100908
  Transmission Date: 20110219
  Serious: Yes (Death, Hospitalization)
  Sender: FDA-Public Use
  Company Number: PHHY2010AR59581

PATIENT
  Sex: Male

DRUGS (1)
  1. EXELON [Suspect]
     Dosage: 10 CM, UNK
     Route: 062
     Dates: start: 20090703

REACTIONS (2)
  - LUNG INFECTION [None]
  - PNEUMONIA [None]
